FAERS Safety Report 9351160 (Version 7)
Quarter: 2016Q3

REPORT INFORMATION
  Report Type: Spontaneous
  Country: US (occurrence: US)
  Receive Date: 20130617
  Receipt Date: 20160805
  Transmission Date: 20161109
  Serious: Yes (Other)
  Sender: FDA-Public Use
  Company Number: US-009507513-1306USA006606

PATIENT
  Sex: Male
  Weight: 75.28 kg

DRUGS (4)
  1. PROSCAR [Suspect]
     Active Substance: FINASTERIDE
     Indication: PROSTATOMEGALY
  2. FINASTERIDE. [Suspect]
     Active Substance: FINASTERIDE
     Indication: PROSTATOMEGALY
     Dosage: 5 MG, QD
     Route: 048
     Dates: start: 20060814, end: 20080709
  3. PROSCAR [Suspect]
     Active Substance: FINASTERIDE
     Indication: BENIGN PROSTATIC HYPERPLASIA
     Dosage: 5 MG, QD
     Route: 048
     Dates: end: 20080904
  4. HYTRIN [Concomitant]
     Active Substance: TERAZOSIN HYDROCHLORIDE
     Indication: PROSTATOMEGALY
     Dosage: 5 MG, QD
     Route: 065
     Dates: start: 20021203

REACTIONS (16)
  - Prostate cancer [Not Recovered/Not Resolved]
  - Ankle fracture [Unknown]
  - Inguinal hernia [Unknown]
  - Hernia repair [Unknown]
  - Glaucoma [Unknown]
  - Lower limb fracture [Unknown]
  - Perineal cyst [Unknown]
  - Radiotherapy to prostate [Unknown]
  - Cancer surgery [Unknown]
  - Renal mass [Unknown]
  - Overweight [Unknown]
  - Ankle operation [Unknown]
  - Biopsy prostate [Unknown]
  - Testicular cyst [Unknown]
  - Gynaecomastia [Unknown]
  - Drug ineffective [Unknown]

NARRATIVE: CASE EVENT DATE: 19930709
